FAERS Safety Report 11068820 (Version 4)
Quarter: 2015Q3

REPORT INFORMATION
  Report Type: Spontaneous
  Country: DE (occurrence: DE)
  Receive Date: 20150427
  Receipt Date: 20150821
  Transmission Date: 20151125
  Serious: No
  Sender: FDA-Public Use
  Company Number: DE-ABBVIE-15P-062-1339577-00

PATIENT
  Sex: Female
  Weight: 59 kg

DRUGS (1)
  1. KREON 25000 [Suspect]
     Active Substance: PANCRELIPASE
     Indication: PRODUCT USED FOR UNKNOWN INDICATION
     Dosage: LONG-TERM TREATMENT; 3 BETWEEN 8:00AM AND 8:00 PM
     Route: 065
     Dates: start: 2005

REACTIONS (2)
  - Suspected counterfeit product [Unknown]
  - Abdominal rigidity [Recovered/Resolved]

NARRATIVE: CASE EVENT DATE: 2014
